FAERS Safety Report 9904207 (Version 1)
Quarter: 2014Q1

REPORT INFORMATION
  Report Type: Report from Study
  Country: US (occurrence: US)
  Receive Date: 20140218
  Receipt Date: 20140218
  Transmission Date: 20141002
  Serious: Yes (Hospitalization)
  Sender: FDA-Public Use
  Company Number: US-ROCHE-1344380

PATIENT
  Sex: Female

DRUGS (8)
  1. RITUXAN [Suspect]
     Indication: PRODUCT USED FOR UNKNOWN INDICATION
     Route: 065
     Dates: start: 20130207
  2. HYDROCHLOROTHIAZIDE [Concomitant]
     Indication: HYPERTENSION
  3. FOLIC ACID [Concomitant]
  4. VITAMIN B12 [Concomitant]
  5. PREDNISONE [Concomitant]
     Route: 065
  6. AMITRIPTYLINE [Concomitant]
     Route: 065
  7. PEPCID [Concomitant]
     Indication: ULCER HAEMORRHAGE
  8. KEPPRA [Concomitant]
     Indication: CONVULSION

REACTIONS (4)
  - Investigation abnormal [Unknown]
  - Inflammation [Unknown]
  - Hepatic failure [Unknown]
  - Systemic lupus erythematosus [Unknown]
